FAERS Safety Report 10689895 (Version 1)
Quarter: 2015Q1

REPORT INFORMATION
  Report Type: Spontaneous
  Country: US (occurrence: None)
  Receive Date: 20150102
  Receipt Date: 20150102
  Transmission Date: 20150720
  Serious: Yes (Other)
  Sender: FDA-Public Use
  Company Number: None

PATIENT
  Age: 25 Year
  Sex: Female
  Weight: 82.56 kg

DRUGS (1)
  1. MIRENA [Suspect]
     Active Substance: LEVONORGESTREL

REACTIONS (10)
  - Visual impairment [None]
  - Sleep disorder [None]
  - Headache [None]
  - Weight increased [None]
  - Hormone level abnormal [None]
  - Cervix carcinoma recurrent [None]
  - Fungal infection [None]
  - Asthenia [None]
  - Metrorrhagia [None]
  - Product quality issue [None]

NARRATIVE: CASE EVENT DATE: 20130523
